FAERS Safety Report 20813046 (Version 1)
Quarter: 2022Q2

REPORT INFORMATION
  Report Type: Spontaneous
  Country: DE (occurrence: None)
  Receive Date: 20220511
  Receipt Date: 20220511
  Transmission Date: 20220721
  Serious: Yes (Hospitalization)
  Sender: FDA-Public Use
  Company Number: 2022A172894

PATIENT
  Age: 38 Year
  Sex: Female
  Weight: 80 kg

DRUGS (1)
  1. FASENRA [Suspect]
     Active Substance: BENRALIZUMAB
     Indication: Asthma
     Dosage: ONE INJECTION EVERY 8 WEEKS
     Route: 058
     Dates: start: 20200401

REACTIONS (2)
  - Fatigue [Unknown]
  - Limb discomfort [Recovered/Resolved with Sequelae]

NARRATIVE: CASE EVENT DATE: 20200601
